FAERS Safety Report 14760815 (Version 1)
Quarter: 2018Q2

REPORT INFORMATION
  Report Type: Report from Study
  Country: US (occurrence: US)
  Receive Date: 20180414
  Receipt Date: 20180414
  Transmission Date: 20180711
  Serious: Yes (Death, Life-Threatening)
  Sender: FDA-Public Use
  Company Number: US-JNJFOC-20180407402

PATIENT
  Age: 71 Year
  Sex: Female

DRUGS (3)
  1. CITALOPRAM [Suspect]
     Active Substance: CITALOPRAM HYDROBROMIDE
     Indication: PRODUCT USED FOR UNKNOWN INDICATION
     Dosage: DOSE: 50 (UNIT UNSPECIFIED) OVER A TWO DAY PERIOD
     Route: 065
  2. TYLENOL 8HR [Suspect]
     Active Substance: ACETAMINOPHEN
     Route: 048
  3. TYLENOL 8HR [Suspect]
     Active Substance: ACETAMINOPHEN
     Indication: PAIN
     Dosage: DOSE: 50 (UNIT UNSPECIFIED)
     Route: 048

REACTIONS (2)
  - Acute hepatic failure [Fatal]
  - Overdose [Fatal]
